FAERS Safety Report 12715378 (Version 6)
Quarter: 2018Q3

REPORT INFORMATION
  Report Type: Report from Study
  Country: CN (occurrence: CN)
  Receive Date: 20160906
  Receipt Date: 20180713
  Transmission Date: 20181010
  Serious: Yes (Other)
  Sender: FDA-Public Use
  Company Number: CN-ROCHE-1618573

PATIENT
  Age: 64 Year
  Sex: Male
  Weight: 62 kg

DRUGS (1)
  1. AVASTIN [Suspect]
     Active Substance: BEVACIZUMAB
     Indication: COLON CANCER METASTATIC
     Route: 041
     Dates: start: 20150228

REACTIONS (8)
  - Transaminases increased [Unknown]
  - Platelet count decreased [Unknown]
  - Hypertension [Unknown]
  - Asthenia [Unknown]
  - Liver injury [Unknown]
  - Platelet count decreased [Recovering/Resolving]
  - Hepatomegaly [Unknown]
  - Protein urine present [Not Recovered/Not Resolved]

NARRATIVE: CASE EVENT DATE: 20150815
